FAERS Safety Report 5016477-7 (Version None)
Quarter: 2006Q2

REPORT INFORMATION
  Report Type: 
  Country: None (occurrence: None)
  Receive Date: 20060602
  Receipt Date: 20060419
  Transmission Date: 20061013
  Serious: Yes (Death, Hospitalization, Other)
  Sender: FDA-Public Use
  Company Number: PHMT2006CA01097

PATIENT
  Age: 73 Year
  Sex: Male

DRUGS (8)
  1. CLOZARIL [Suspect]
     Indication: MAJOR DEPRESSION
     Dosage: 350 MG, QHS
     Route: 048
     Dates: start: 20041013, end: 20060412
  2. EFFEXOR [Concomitant]
     Dosage: 300 MG, QD
  3. DOMPERIDONE [Concomitant]
     Dosage: 10 MG, TID
  4. ACETAMINOPHEN [Concomitant]
     Dosage: 1000 MG,  QID
  5. VITAMIN B-12 [Concomitant]
     Dosage: QMO
     Route: 030
  6. DOXAZOSIN [Concomitant]
     Dosage: 2 MG, QHS
  7. DICLO [Concomitant]
     Dosage: 50 MG, PRN BID
  8. HALDOL [Concomitant]
     Dosage: 5 MG  PRN TWICE A WEEK
     Route: 030

REACTIONS (12)
  - ABDOMINAL PAIN [None]
  - GALLBLADDER ENLARGEMENT [None]
  - GALLBLADDER NECROSIS [None]
  - GASTROINTESTINAL NECROSIS [None]
  - GENERAL PHYSICAL HEALTH DETERIORATION [None]
  - HYPOTENSION [None]
  - INTESTINAL ISCHAEMIA [None]
  - INTUBATION [None]
  - LARGE INTESTINE PERFORATION [None]
  - LIVER DISORDER [None]
  - RESUSCITATION [None]
  - SUDDEN DEATH [None]
